FAERS Safety Report 7661285-1 (Version None)
Quarter: 2011Q3

REPORT INFORMATION
  Report Type: 
  Country: None (occurrence: None)
  Receive Date: 20110805
  Receipt Date: 20101001
  Transmission Date: 20111222
  Serious: No
  Sender: FDA-Public Use
  Company Number: US-ABBOTT-10P-163-0676018-00

PATIENT
  Sex: Male
  Weight: 88.984 kg

DRUGS (6)
  1. NIASPAN [Suspect]
     Indication: BLOOD CHOLESTEROL
  2. PROBENECID [Concomitant]
     Indication: GOUT
  3. PRAVASTATIN [Concomitant]
     Indication: BLOOD CHOLESTEROL
  4. NORVASC [Concomitant]
     Indication: HYPERTENSION
  5. LISINOPRIL [Concomitant]
     Indication: HYPERTENSION
  6. CARVEDILOL [Concomitant]
     Indication: HYPERTENSION

REACTIONS (1)
  - FLUSHING [None]
